FAERS Safety Report 15678067 (Version 2)
Quarter: 2018Q4

REPORT INFORMATION
  Report Type: Spontaneous
  Country: US (occurrence: US)
  Receive Date: 20181201
  Receipt Date: 20181214
  Transmission Date: 20190205
  Serious: Yes (Other)
  Sender: FDA-Public Use
  Company Number: US-009507513-1811USA011003

PATIENT
  Age: 37 Year
  Sex: Female
  Weight: 107.48 kg

DRUGS (1)
  1. NEXPLANON [Suspect]
     Active Substance: ETONOGESTREL
     Indication: CONTRACEPTION
     Dosage: 1IMPLANT
     Route: 059
     Dates: start: 20161014

REACTIONS (8)
  - Female sterilisation [Unknown]
  - Unintended pregnancy [Recovered/Resolved]
  - Complication associated with device [Recovered/Resolved]
  - Surgery [Unknown]
  - Complication of device removal [Not Recovered/Not Resolved]
  - Abortion spontaneous [Unknown]
  - Pregnancy with implant contraceptive [Recovered/Resolved]
  - General anaesthesia [Unknown]

NARRATIVE: CASE EVENT DATE: 2018
